FAERS Safety Report 12248617 (Version 3)
Quarter: 2016Q2

REPORT INFORMATION
  Report Type: Spontaneous
  Country: US (occurrence: US)
  Receive Date: 20160408
  Receipt Date: 20160519
  Transmission Date: 20160815
  Serious: Yes (Other)
  Sender: FDA-Public Use
  Company Number: US-PFIZER INC-2016193823

PATIENT
  Age: 56 Year
  Sex: Female
  Weight: 71 kg

DRUGS (6)
  1. NORVASC [Suspect]
     Active Substance: AMLODIPINE BESYLATE
     Dosage: 2.5 MG, 1X/DAY
     Route: 048
     Dates: start: 20160330, end: 20160331
  2. NORVASC [Suspect]
     Active Substance: AMLODIPINE BESYLATE
     Dosage: UNK
  3. ZITHROMAX [Concomitant]
     Active Substance: AZITHROMYCIN DIHYDRATE
     Indication: SINUSITIS
     Dosage: UNK (STANDARD Z-PACK DOSE)
     Route: 048
     Dates: start: 20160401, end: 20160401
  4. NORVASC [Suspect]
     Active Substance: AMLODIPINE BESYLATE
     Indication: BLOOD PRESSURE MEASUREMENT
     Dosage: 5 MG, 1X/DAY (10MG PILL, HALVED INTO 5MG)
     Route: 048
     Dates: start: 201602
  5. GENOTROPIN [Concomitant]
     Active Substance: SOMATROPIN
     Indication: QUALITY OF LIFE DECREASED
     Dosage: 0.6 MG, 1X/DAY
  6. PREMARIN [Concomitant]
     Active Substance: ESTROGENS, CONJUGATED
     Indication: MENOPAUSE
     Dosage: 0.625 MG, 1X/DAY
     Route: 048
     Dates: start: 2015

REACTIONS (5)
  - Blood pressure inadequately controlled [Recovering/Resolving]
  - Palpitations [Unknown]
  - Suspected counterfeit product [Recovering/Resolving]
  - Insomnia [Recovering/Resolving]
  - Product odour abnormal [Unknown]

NARRATIVE: CASE EVENT DATE: 20160330
